FAERS Safety Report 16483079 (Version 1)
Quarter: 2019Q2

REPORT INFORMATION
  Report Type: Report from Study
  Country: JP (occurrence: JP)
  Receive Date: 20190627
  Receipt Date: 20190627
  Transmission Date: 20190711
  Serious: Yes (Other)
  Sender: FDA-Public Use
  Company Number: JP-ACTELION-A-CH2019-192207

PATIENT
  Age: 68 Year
  Sex: Male

DRUGS (15)
  1. NEXIUM [Concomitant]
     Active Substance: ESOMEPRAZOLE MAGNESIUM
  2. SAMSCA [Concomitant]
     Active Substance: TOLVAPTAN
  3. SOLDACTONE [Concomitant]
     Active Substance: CANRENOATE POTASSIUM
  4. EQUA [Concomitant]
     Active Substance: VILDAGLIPTIN
  5. REBAMIPIDE [Concomitant]
     Active Substance: REBAMIPIDE
  6. WARFARIN [Concomitant]
     Active Substance: WARFARIN
  7. ADCIRCA [Concomitant]
     Active Substance: TADALAFIL
  8. THYRADIN S [Concomitant]
     Active Substance: LEVOTHYROXINE SODIUM
  9. CRESTOR [Concomitant]
     Active Substance: ROSUVASTATIN CALCIUM
  10. SPIRONOLACTONE. [Concomitant]
     Active Substance: SPIRONOLACTONE
  11. OXYGEN. [Concomitant]
     Active Substance: OXYGEN
  12. LASIX [Concomitant]
     Active Substance: FUROSEMIDE
  13. OPSUMIT [Suspect]
     Active Substance: MACITENTAN
     Indication: PULMONARY ARTERIAL HYPERTENSION
     Dosage: 10 MG, QD
     Route: 048
     Dates: start: 20180411
  14. CARBOCISTEIN [Concomitant]
     Active Substance: CARBOCYSTEINE
  15. FUROSEMIDE. [Concomitant]
     Active Substance: FUROSEMIDE

REACTIONS (5)
  - Post herpetic neuralgia [Recovered/Resolved with Sequelae]
  - Pyrexia [Recovered/Resolved]
  - Herpes zoster [Recovered/Resolved with Sequelae]
  - Hyperkalaemia [Recovered/Resolved]
  - Renal impairment [Not Recovered/Not Resolved]

NARRATIVE: CASE EVENT DATE: 20180704
